FAERS Safety Report 9403601 (Version 1)
Quarter: 2013Q3

REPORT INFORMATION
  Report Type: Spontaneous
  Country: NL (occurrence: NL)
  Receive Date: 20130717
  Receipt Date: 20130717
  Transmission Date: 20140515
  Serious: Yes (Hospitalization, Other)
  Sender: FDA-Public Use
  Company Number: NL-009507513-1307NLD005705

PATIENT
  Age: 41 Year
  Sex: Male

DRUGS (7)
  1. LORATADINE [Suspect]
     Dosage: TIMES PER 1DF
     Route: 048
     Dates: start: 20130618
  2. OMEPRAZOLE [Concomitant]
     Dosage: 1 TIMES PER 1 DAYS 40MG
     Dates: start: 20121231
  3. LAMOTRIGINE [Concomitant]
     Dosage: 2 TIMES PER 1 DAYS 75MG
     Dates: start: 20110308
  4. RIVOTRIL [Concomitant]
     Dosage: 3 TIMES PER 1 DAYS 0.5MG
     Dates: start: 20120214
  5. DIAZEPAM [Concomitant]
     Dosage: TIMES PER 1 DF
     Dates: start: 20110329
  6. MACROGOL HEXAL [Concomitant]
     Dosage: 1 TIMES PER 1 DAYS 2 DF
     Dates: start: 20101029
  7. CETOMACROGOLCREME FNA [Concomitant]
     Dosage: TIMES PER 1DF
     Dates: start: 20101129

REACTIONS (1)
  - Epilepsy [Unknown]
